FAERS Safety Report 9665053 (Version 1)
Quarter: 2013Q4

REPORT INFORMATION
  Report Type: Spontaneous
  Country: IT (occurrence: IT)
  Receive Date: 20131101
  Receipt Date: 20131101
  Transmission Date: 20140711
  Serious: Yes (Other)
  Sender: FDA-Public Use
  Company Number: PHHY2013IT120507

PATIENT
  Sex: Male

DRUGS (2)
  1. METHOTREXATE [Suspect]
     Indication: ARTHRITIS
     Dosage: 15 MG, QW
     Route: 030
     Dates: start: 20111107, end: 20120301
  2. RANITIDINE [Concomitant]

REACTIONS (2)
  - Amyotrophy [Recovered/Resolved]
  - Hypotonia [Recovered/Resolved]
